FAERS Safety Report 8549387-9 (Version None)
Quarter: 2012Q3

REPORT INFORMATION
  Report Type: 
  Country: None (occurrence: None)
  Receive Date: 20120730
  Receipt Date: 20120723
  Transmission Date: 20120928
  Serious: Yes (Hospitalization, Other)
  Sender: FDA-Public Use
  Company Number: US-JNJFOC-20120517596

PATIENT
  Sex: Female
  Weight: 75.75 kg

DRUGS (11)
  1. OTHER THERAPEUTIC PRODUCTS [Concomitant]
     Indication: NUTRITIONAL SUPPORT
     Route: 065
  2. PREDNISONE [Concomitant]
     Indication: RHEUMATOID ARTHRITIS
     Route: 048
  3. VITAMIN D [Concomitant]
     Route: 065
  4. REMICADE [Suspect]
     Indication: RHEUMATOID ARTHRITIS
     Route: 042
     Dates: start: 20110720
  5. METHOTREXATE [Concomitant]
     Indication: RHEUMATOID ARTHRITIS
     Route: 048
     Dates: start: 20120412
  6. METHOTREXATE [Concomitant]
     Route: 048
     Dates: start: 20080101, end: 20120201
  7. HYDROCODONE [Concomitant]
     Indication: RHEUMATOID ARTHRITIS
     Route: 065
  8. ZOLOFT [Concomitant]
     Route: 065
  9. REMICADE [Suspect]
     Route: 042
     Dates: start: 20111001, end: 20120201
  10. VITAMIN B COMPLEX CAP [Concomitant]
     Indication: NUTRITIONAL SUPPORT
     Route: 065
  11. FOLIC ACID [Concomitant]
     Route: 065

REACTIONS (3)
  - PULMONARY OEDEMA [None]
  - BACK DISORDER [None]
  - CARDIAC DISORDER [None]
